FAERS Safety Report 8227857-0 (Version None)
Quarter: 2012Q1

REPORT INFORMATION
  Report Type: 
  Country: None (occurrence: None)
  Receive Date: 20120322
  Receipt Date: 20120316
  Transmission Date: 20120608
  Serious: Yes (Hospitalization)
  Sender: FDA-Public Use
  Company Number: DE-SANOFI-AVENTIS-2011SA054343

PATIENT
  Age: 70 Year
  Sex: Male
  Weight: 140 kg

DRUGS (8)
  1. SPIRIVA [Concomitant]
  2. METOPROLOL SUCCINATE [Concomitant]
  3. BUDESONIDE [Concomitant]
  4. FORMOTEROL FUMARATE [Concomitant]
  5. ALBUTEROL [Concomitant]
  6. LEVOTHYROXINE SODIUM [Concomitant]
  7. TAMSULOSIN HCL [Concomitant]
  8. MULTAQ [Suspect]
     Indication: ATRIAL FIBRILLATION
     Route: 048
     Dates: start: 20101229, end: 20110203

REACTIONS (2)
  - PANCREATITIS [None]
  - LIPASE INCREASED [None]
